FAERS Safety Report 4663502-9 (Version None)
Quarter: 2005Q2

REPORT INFORMATION
  Report Type: 
  Country: None (occurrence: None)
  Receive Date: 20050517
  Receipt Date: 20050510
  Transmission Date: 20051028
  Serious: Yes (Hospitalization)
  Sender: FDA-Public Use
  Company Number: US-GLAXOSMITHKLINE-A0558030A

PATIENT
  Age: 30 Year
  Sex: Female

DRUGS (6)
  1. LAMICTAL [Suspect]
     Indication: BIPOLAR DISORDER
     Route: 048
     Dates: start: 20010101
  2. LITHIUM CARBONATE [Suspect]
     Indication: BIPOLAR DISORDER
     Dosage: 600MG PER DAY
     Route: 065
     Dates: start: 20041001
  3. LEXAPRO [Suspect]
     Indication: DEPRESSION
     Dosage: 20MG PER DAY
     Route: 048
     Dates: start: 20040101
  4. ABILIFY [Suspect]
     Indication: BIPOLAR DISORDER
     Dosage: 15MG PER DAY
     Route: 065
     Dates: start: 20041001
  5. SEROQUEL [Suspect]
     Indication: BIPOLAR DISORDER
     Route: 065
     Dates: start: 20010101, end: 20041001
  6. TRAZODONE [Suspect]
     Indication: BIPOLAR DISORDER
     Route: 065
     Dates: start: 20010101, end: 20041001

REACTIONS (10)
  - ANTISOCIAL BEHAVIOUR [None]
  - DEPRESSION [None]
  - DRUG INEFFECTIVE [None]
  - INTENTIONAL MISUSE [None]
  - MANIA [None]
  - OVERDOSE [None]
  - PERSONALITY CHANGE [None]
  - SUICIDAL IDEATION [None]
  - SUICIDE ATTEMPT [None]
  - WEIGHT INCREASED [None]
